FAERS Safety Report 8533108-X (Version None)
Quarter: 2012Q3

REPORT INFORMATION
  Report Type: 
  Country: None (occurrence: None)
  Receive Date: 20120711
  Receipt Date: 20120702
  Transmission Date: 20120928
  Serious: Yes (Other)
  Sender: FDA-Public Use
  Company Number: AUR-APL-2012-02561

PATIENT
  Age: 31 Year
  Sex: Male
  Weight: 85 kg

DRUGS (5)
  1. METHADONE HYDROCHLORIDE [Concomitant]
  2. CETRABEN EMOLLIENT CREAM (PARAFFIN) [Concomitant]
  3. PRAZIQUANTEL (PRAZIQUANTEL) [Concomitant]
  4. TERBINAFINE HCL [Suspect]
     Indication: PRODUCT USED FOR UNKNOWN INDICATION
     Dosage: UNKNOWN
     Dates: start: 20120502
  5. AMOROLFINE (AMOROLFINE) [Concomitant]

REACTIONS (1)
  - PHOTOSENSITIVITY REACTION [None]
